FAERS Safety Report 6359726-5 (Version None)
Quarter: 2009Q3

REPORT INFORMATION
  Report Type: 
  Country: None (occurrence: None)
  Receive Date: 20090917
  Receipt Date: 20090915
  Transmission Date: 20100115
  Serious: Yes (Other)
  Sender: FDA-Public Use
  Company Number: US-MERCK-0908USA02720

PATIENT
  Age: 65 Year
  Sex: Male

DRUGS (3)
  1. VYTORIN [Suspect]
     Route: 048
  2. ZOCOR [Suspect]
     Route: 048
  3. ESOMEPRAZOLE [Concomitant]
     Route: 065

REACTIONS (1)
  - EPISTAXIS [None]
